APPROVED DRUG PRODUCT: HYDROCODONE BITARTRATE AND ACETAMINOPHEN
Active Ingredient: ACETAMINOPHEN; HYDROCODONE BITARTRATE
Strength: 500MG;5MG
Dosage Form/Route: TABLET;ORAL
Application: A088577 | Product #001
Applicant: BARR LABORATORIES INC
Approved: Dec 21, 1984 | RLD: No | RS: No | Type: DISCN